FAERS Safety Report 13046493 (Version 1)
Quarter: 2016Q4

REPORT INFORMATION
  Report Type: Spontaneous
  Country: US (occurrence: US)
  Receive Date: 20161220
  Receipt Date: 20161220
  Transmission Date: 20170207
  Serious: No
  Sender: FDA-Public Use
  Company Number: US-PFIZER INC-2016588986

PATIENT
  Age: 16 Year
  Sex: Male

DRUGS (1)
  1. ADVIL [Suspect]
     Active Substance: IBUPROFEN
     Dosage: 6 DF, DAILY (6 ADVILS IN A COURSE OF MAY BE 7 OR 8 HOURS)

REACTIONS (2)
  - Intentional product use issue [Unknown]
  - Vomiting [Unknown]
